FAERS Safety Report 10494929 (Version 1)
Quarter: 2014Q3

REPORT INFORMATION
  Report Type: Spontaneous
  Country: US (occurrence: None)
  Receive Date: 20140815
  Receipt Date: 20140815
  Transmission Date: 20150326
  Serious: Yes (Hospitalization, Other)
  Sender: FDA-Public Use
  Company Number: ADR-2014-00896

PATIENT
  Sex: Male

DRUGS (1)
  1. BACLOFEN  INTRATHECAL [Suspect]
     Active Substance: BACLOFEN
     Indication: MUSCLE SPASTICITY

REACTIONS (4)
  - White blood cell count increased [None]
  - Central nervous system infection [None]
  - Mental status changes [None]
  - Pyrexia [None]
